FAERS Safety Report 5151203-2 (Version None)
Quarter: 2006Q4

REPORT INFORMATION
  Report Type: 
  Country: None (occurrence: None)
  Receive Date: 20061114
  Receipt Date: 20061114
  Transmission Date: 20070319
  Serious: Yes (Other)
  Sender: FDA-Public Use
  Company Number: None

PATIENT
  Age: 63 Year
  Sex: Female
  Weight: 86.1834 kg

DRUGS (2)
  1. EQUATE  PAIN RELIEVER     500MG         /PERRIGO [Suspect]
     Indication: PAIN
     Dosage: 3 CAPLETS   2-3   PO
     Route: 048
     Dates: start: 20061005, end: 20061109
  2. EQUATE  PAIN RELIEVER     500MG         /PERRIGO [Suspect]
     Indication: RHEUMATOID ARTHRITIS
     Dosage: 3 CAPLETS   2-3   PO
     Route: 048
     Dates: start: 20061005, end: 20061109

REACTIONS (4)
  - ABDOMINAL DISCOMFORT [None]
  - ACTIVITIES OF DAILY LIVING IMPAIRED [None]
  - DYSPNOEA [None]
  - PHARMACEUTICAL PRODUCT COMPLAINT [None]
